FAERS Safety Report 23358694 (Version 1)
Quarter: 2024Q1

REPORT INFORMATION
  Report Type: Spontaneous
  Country: CA (occurrence: CA)
  Receive Date: 20240102
  Receipt Date: 20240102
  Transmission Date: 20240410
  Serious: Yes (Hospitalization)
  Sender: FDA-Public Use
  Company Number: CA-PFIZER INC-202300450737

PATIENT
  Age: 94 Year
  Sex: Male

DRUGS (1)
  1. VYNDAMAX [Suspect]
     Active Substance: TAFAMIDIS
     Indication: Cardiac amyloidosis
     Dosage: 61 MG, UNKNOWN IF STARTED
     Route: 048

REACTIONS (4)
  - Fall [Unknown]
  - Head injury [Unknown]
  - Limb injury [Unknown]
  - Dysstasia [Unknown]

NARRATIVE: CASE EVENT DATE: 20231203
